FAERS Safety Report 6795279-5 (Version None)
Quarter: 2010Q2

REPORT INFORMATION
  Report Type: 
  Country: None (occurrence: None)
  Receive Date: 20100625
  Receipt Date: 20100622
  Transmission Date: 20101027
  Serious: Yes (Hospitalization)
  Sender: FDA-Public Use
  Company Number: DE-SANOFI-AVENTIS-A04200900309

PATIENT
  Age: 48 Year
  Sex: Male
  Weight: 72 kg

DRUGS (7)
  1. ACETYLSALICYLIC ACID [Suspect]
     Indication: PERIPHERAL ARTERIAL OCCLUSIVE DISEASE
     Route: 048
     Dates: start: 20020101, end: 20081218
  2. CLOPIDOGREL BISULFATE [Suspect]
     Indication: PERIPHERAL ARTERIAL OCCLUSIVE DISEASE
     Dosage: UNIT DOSE: 75 MG
     Route: 048
     Dates: start: 20020101, end: 20081218
  3. BRIVUDINE [Suspect]
     Indication: HERPES ZOSTER
     Route: 048
     Dates: start: 20081113, end: 20081218
  4. INSULIN NOVOLET [Concomitant]
     Indication: TYPE 2 DIABETES MELLITUS
     Route: 058
  5. LOCOL [Concomitant]
     Route: 048
  6. PANTOZOL [Concomitant]
     Indication: PROPHYLAXIS
     Route: 048
     Dates: start: 20081216
  7. RAMIPRIL [Concomitant]
     Route: 048
     Dates: start: 20000101

REACTIONS (2)
  - GASTRITIS [None]
  - PANCREATITIS ACUTE [None]
